FAERS Safety Report 11109537 (Version 1)
Quarter: 2015Q2

REPORT INFORMATION
  Report Type: Spontaneous
  Country: US (occurrence: US)
  Receive Date: 20150513
  Receipt Date: 20150513
  Transmission Date: 20150821
  Serious: No
  Sender: FDA-Public Use
  Company Number: US-MYLANLABS-2015M1003628

PATIENT
  Age: 34 Year
  Sex: Female
  Weight: 63.49 kg

DRUGS (1)
  1. XULANE [Suspect]
     Active Substance: ETHINYL ESTRADIOL\NORELGESTROMIN
     Indication: CONTRACEPTION
     Dosage: 150 ?G, QD, CHANGED QW X3, OFF 1 W
     Route: 062
     Dates: start: 201408, end: 201411

REACTIONS (5)
  - Back pain [Recovered/Resolved]
  - Increased appetite [Recovered/Resolved]
  - Mood swings [Recovered/Resolved]
  - Metrorrhagia [Recovered/Resolved]
  - Headache [Recovered/Resolved]

NARRATIVE: CASE EVENT DATE: 201408
